FAERS Safety Report 12199823 (Version 1)
Quarter: 2016Q1

REPORT INFORMATION
  Report Type: Spontaneous
  Country: US (occurrence: None)
  Receive Date: 20160321
  Receipt Date: 20160321
  Transmission Date: 20160526
  Serious: No
  Sender: FDA-Public Use
  Company Number: None

PATIENT
  Age: 60 Year
  Sex: Female

DRUGS (7)
  1. ZOFRAN [Concomitant]
     Active Substance: ONDANSETRON HYDROCHLORIDE
  2. LEVOTYROXIN [Concomitant]
  3. IMATINIB MES 400MG TAB SUN [Suspect]
     Active Substance: IMATINIB MESYLATE
     Indication: WHITE BLOOD CELL COUNT INCREASED
     Route: 048
     Dates: start: 20150223
  4. ESTRADIOL. [Concomitant]
     Active Substance: ESTRADIOL
  5. SPRYCEL [Concomitant]
     Active Substance: DASATINIB
  6. PROGESTERONE. [Concomitant]
     Active Substance: PROGESTERONE
  7. MULTI VITAMIN [Concomitant]
     Active Substance: VITAMINS

REACTIONS (3)
  - Alopecia [None]
  - Madarosis [None]
  - Nausea [None]

NARRATIVE: CASE EVENT DATE: 20160303
